FAERS Safety Report 21657525 (Version 4)
Quarter: 2022Q4

REPORT INFORMATION
  Report Type: Spontaneous
  Country: US (occurrence: US)
  Receive Date: 20221129
  Receipt Date: 20221229
  Transmission Date: 20230112
  Serious: No
  Sender: FDA-Public Use
  Company Number: US-PFIZER INC-PV202200108622

PATIENT
  Age: 8 Year
  Sex: Female
  Weight: 16.78 kg

DRUGS (1)
  1. GENOTROPIN [Suspect]
     Active Substance: SOMATROPIN
     Indication: Growth hormone deficiency
     Dosage: 0.6 MG, DAILY, EVERY NIGHT, IN LEG
     Dates: start: 202210

REACTIONS (3)
  - Drug dose omission by device [Unknown]
  - Poor quality product administered [Unknown]
  - Device breakage [Unknown]

NARRATIVE: CASE EVENT DATE: 20221120
